FAERS Safety Report 11401978 (Version 1)
Quarter: 2015Q3

REPORT INFORMATION
  Report Type: Spontaneous
  Country: US (occurrence: None)
  Receive Date: 20150819
  Receipt Date: 20150819
  Transmission Date: 20151125
  Serious: Yes (Other)
  Sender: FDA-Public Use
  Company Number: None

PATIENT
  Age: 74 Year
  Sex: Female
  Weight: 112.95 kg

DRUGS (1)
  1. ISTODAX [Suspect]
     Active Substance: ROMIDEPSIN
     Indication: T-CELL LYMPHOMA
     Dosage: 28 MG FIST DOSE INTRAVENOUS
     Route: 042
     Dates: start: 20150818, end: 20150818

REACTIONS (2)
  - Product label issue [None]
  - Product packaging quantity issue [None]

NARRATIVE: CASE EVENT DATE: 20150818
